FAERS Safety Report 19113427 (Version 1)
Quarter: 2021Q2

REPORT INFORMATION
  Report Type: Spontaneous
  Country: US (occurrence: US)
  Receive Date: 20210409
  Receipt Date: 20210409
  Transmission Date: 20210717
  Serious: No
  Sender: FDA-Public Use
  Company Number: US-ALLERGAN-2026366US

PATIENT
  Age: 29 Year
  Sex: Female

DRUGS (5)
  1. LILETTA [Suspect]
     Active Substance: LEVONORGESTREL
     Indication: CONTRACEPTION
     Dosage: 52 MG, SINGLE
     Route: 015
     Dates: start: 20200330
  2. NOVOLIN NOS [Concomitant]
     Active Substance: INSULIN HUMAN
     Indication: GESTATIONAL DIABETES
  3. ASPIRIN. [Concomitant]
     Active Substance: ASPIRIN
     Dosage: 81 MG, QD
     Route: 048
  4. KEFLEX [Concomitant]
     Active Substance: CEPHALEXIN
     Indication: URINARY TRACT INFECTION
     Route: 048
  5. PEPCID [Concomitant]
     Active Substance: FAMOTIDINE
     Dosage: UNK
     Route: 048

REACTIONS (2)
  - Device expulsion [Unknown]
  - Device use issue [Unknown]

NARRATIVE: CASE EVENT DATE: 2020
